FAERS Safety Report 5580132-5 (Version None)
Quarter: 2007Q4

REPORT INFORMATION
  Report Type: 
  Country: None (occurrence: None)
  Receive Date: 20071228
  Receipt Date: 20071217
  Transmission Date: 20080405
  Serious: Yes (Other)
  Sender: FDA-Public Use
  Company Number: 2007-04252

PATIENT
  Age: 68 Year
  Sex: Female
  Weight: 44 kg

DRUGS (4)
  1. VELCADE [Suspect]
     Indication: MULTIPLE MYELOMA
     Dosage: 1.65 MG/M2, INTRAVENOUS
     Route: 042
     Dates: start: 20070604, end: 20070705
  2. PREDNISONE [Concomitant]
  3. ALENDRONATE SODIUM (BONALON) (ALENDRONATE SODIUM) [Concomitant]
  4. ITRACONAZOLE [Concomitant]

REACTIONS (1)
  - BONE MARROW FAILURE [None]
